FAERS Safety Report 17566038 (Version 1)
Quarter: 2020Q1

REPORT INFORMATION
  Report Type: Spontaneous
  Country: US (occurrence: US)
  Receive Date: 20200320
  Receipt Date: 20200320
  Transmission Date: 20200409
  Serious: No
  Sender: FDA-Public Use
  Company Number: None

PATIENT
  Age: 66 Year
  Sex: Female

DRUGS (2)
  1. OXYCODONE 30MG [Concomitant]
     Active Substance: OXYCODONE
     Dates: start: 20200317, end: 20200319
  2. OXYCODONE 30MG [Suspect]
     Active Substance: OXYCODONE

REACTIONS (3)
  - Device use error [None]
  - Product dispensing error [None]
  - Incorrect dose administered [None]

NARRATIVE: CASE EVENT DATE: 20200317
